FAERS Safety Report 6809423-4 (Version None)
Quarter: 2010Q2

REPORT INFORMATION
  Report Type: 
  Country: None (occurrence: None)
  Receive Date: 20100630
  Receipt Date: 20100617
  Transmission Date: 20101027
  Serious: Yes (Hospitalization)
  Sender: FDA-Public Use
  Company Number: FR-SANOFI-AVENTIS-2010SA034963

PATIENT
  Age: 49 Year
  Sex: Female

DRUGS (27)
  1. LOVENOX [Suspect]
     Route: 058
     Dates: start: 20100111, end: 20100112
  2. PROPOFOL [Suspect]
     Route: 042
     Dates: start: 20100112, end: 20100112
  3. ATRACURIUM [Suspect]
     Route: 042
     Dates: start: 20100112, end: 20100112
  4. SUFENTA PRESERVATIVE FREE [Suspect]
     Route: 042
     Dates: start: 20100112, end: 20100112
  5. SODIUM PHOSPHATE DIBASIC/SODIUM PHOSPHATE MONOBASIC [Suspect]
     Route: 054
     Dates: start: 20100111, end: 20100111
  6. DEXAMETHASONE [Suspect]
     Route: 042
     Dates: start: 20100112, end: 20100112
  7. ACUPAN [Suspect]
     Route: 065
     Dates: start: 20100112, end: 20100112
  8. BETADINE [Suspect]
     Route: 003
     Dates: start: 20100111, end: 20100112
  9. NAROPIN [Suspect]
     Route: 050
     Dates: start: 20100112, end: 20100112
  10. DROPERIDOL [Suspect]
     Route: 042
     Dates: start: 20100112, end: 20100112
  11. MIDAZOLAM HCL [Suspect]
     Route: 042
     Dates: start: 20100112, end: 20100112
  12. AUGMENTIN '125' [Suspect]
     Route: 042
     Dates: start: 20100112, end: 20100112
  13. SUPRANE [Suspect]
     Route: 055
     Dates: start: 20100112, end: 20100112
  14. ATROPINE SULFATE [Suspect]
     Route: 042
     Dates: start: 20100112, end: 20100112
  15. BETADINE GYNECOLOGICAL [Suspect]
     Dosage: VAGINAL SOLUTION AT 10%
     Route: 067
     Dates: start: 20100112, end: 20100112
  16. NEOSTIGMINE METILSULFATE [Suspect]
     Route: 042
     Dates: start: 20100112, end: 20100112
  17. PROFENID [Concomitant]
     Route: 065
     Dates: end: 20100101
  18. PERFALGAN [Concomitant]
     Route: 042
     Dates: end: 20100118
  19. MOPRAL [Concomitant]
     Route: 065
  20. NEURONTIN [Concomitant]
     Route: 048
     Dates: start: 20100111, end: 20100111
  21. NEURONTIN [Concomitant]
     Route: 048
     Dates: start: 20100112, end: 20100112
  22. NEURONTIN [Concomitant]
     Route: 048
     Dates: start: 20100116, end: 20100116
  23. NEURONTIN [Concomitant]
     Route: 048
     Dates: start: 20100117, end: 20100119
  24. RINGER [Concomitant]
     Route: 042
     Dates: start: 20100112, end: 20100112
  25. SERUM PHYSIOLOGICAL [Concomitant]
     Route: 042
     Dates: start: 20100112, end: 20100112
  26. DOLIPRANE [Concomitant]
     Route: 065
  27. EXACYL [Concomitant]
     Route: 065

REACTIONS (3)
  - HAEMATURIA [None]
  - OLIGURIA [None]
  - RENAL FAILURE ACUTE [None]
